FAERS Safety Report 24086867 (Version 2)
Quarter: 2025Q1

REPORT INFORMATION
  Report Type: Spontaneous
  Country: US (occurrence: US)
  Receive Date: 20240713
  Receipt Date: 20250225
  Transmission Date: 20250408
  Serious: Yes (Hospitalization, Other)
  Sender: SANOFI AVENTIS
  Company Number: US-SA-SAC20240709000840

PATIENT
  Age: 76 Year
  Sex: Female
  Weight: 47.699 kg

DRUGS (19)
  1. REZUROCK [Suspect]
     Active Substance: BELUMOSUDIL
     Indication: Chronic graft versus host disease
     Dosage: 200 MG, QD
     Route: 048
     Dates: start: 20230516
  2. FISH OIL [Concomitant]
     Active Substance: FISH OIL
  3. HYDROXYZINE [Concomitant]
     Active Substance: HYDROXYZINE HYDROCHLORIDE
  4. PREDNISONE [Concomitant]
     Active Substance: PREDNISONE
  5. JAKAFI [Concomitant]
     Active Substance: RUXOLITINIB
  6. TRAMADOL [Concomitant]
     Active Substance: TRAMADOL
  7. ADVAIR HFA [Concomitant]
     Active Substance: FLUTICASONE PROPIONATE\SALMETEROL XINAFOATE
  8. ACYCLOVIR [Concomitant]
     Active Substance: ACYCLOVIR
  9. BIOTIN\CALCIUM PANTOTHENATE\CHOLINE BITARTRATE\CYANOCOBALAMIN\FOLIC AC [Concomitant]
     Active Substance: BIOTIN\CALCIUM PANTOTHENATE\CHOLINE BITARTRATE\CYANOCOBALAMIN\FOLIC ACID\INOSITOL\NIACINAMIDE\PYRIDO
  10. AZITHROMYCIN [Concomitant]
     Active Substance: AZITHROMYCIN
  11. B COMPLEX WITH B-12 [Concomitant]
  12. ELIQUIS [Concomitant]
     Active Substance: APIXABAN
  13. DAPSONE [Concomitant]
     Active Substance: DAPSONE
  14. BILBERRY [VACCINIUM MYRTILLUS] [Concomitant]
  15. LEVOTHYROXINE [Concomitant]
     Active Substance: LEVOTHYROXINE
  16. METOPROLOL SUCCINATE [Concomitant]
     Active Substance: METOPROLOL SUCCINATE
  17. MONTELUKAST [Concomitant]
     Active Substance: MONTELUKAST
  18. SIROLIMUS [Concomitant]
     Active Substance: SIROLIMUS
  19. SODIUM CHLORIDE [Concomitant]
     Active Substance: SODIUM CHLORIDE

REACTIONS (1)
  - Spinal cord compression [Unknown]
